FAERS Safety Report 8499720-1 (Version None)
Quarter: 2012Q2

REPORT INFORMATION
  Report Type: 
  Country: None (occurrence: None)
  Receive Date: 20120629
  Receipt Date: 20120620
  Transmission Date: 20120825
  Serious: Yes (Hospitalization)
  Sender: FDA-Public Use
  Company Number: AUR-APL-2012-02747

PATIENT
  Age: 61 Year
  Sex: Female

DRUGS (1)
  1. METFFORMIN HYDROCHLORIDE [Suspect]
     Indication: PRODUCT USED FOR UNKNOWN INDICATION

REACTIONS (6)
  - ABDOMINAL DISCOMFORT [None]
  - HYPOTENSION [None]
  - TACHYPNOEA [None]
  - BRADYCARDIA [None]
  - ANURIA [None]
  - CONFUSIONAL STATE [None]
